FAERS Safety Report 21852461 (Version 3)
Quarter: 2023Q2

REPORT INFORMATION
  Report Type: Other
  Country: BR (occurrence: BR)
  Receive Date: 20230112
  Receipt Date: 20230505
  Transmission Date: 20230722
  Serious: Yes (Death)
  Sender: FDA-Public Use
  Company Number: BR-TOLMAR, INC.-22BR038229

PATIENT
  Age: 76 Year
  Sex: Male
  Weight: 68.6 kg

DRUGS (2)
  1. ELIGARD [Suspect]
     Active Substance: LEUPROLIDE ACETATE
     Indication: Prostate cancer
     Dosage: UNK UNK, Q 3 MONTH
     Route: 058
     Dates: start: 20170529, end: 20171113
  2. ENZALUTAMIDE [Suspect]
     Active Substance: ENZALUTAMIDE
     Indication: Prostate cancer
     Dosage: UNK, QD
     Route: 048
     Dates: start: 20170529, end: 20180131

REACTIONS (1)
  - Acute myocardial infarction [Fatal]

NARRATIVE: CASE EVENT DATE: 20221127
